FAERS Safety Report 4663470-X (Version None)
Quarter: 2005Q2

REPORT INFORMATION
  Report Type: 
  Country: None (occurrence: None)
  Receive Date: 20050517
  Receipt Date: 20050504
  Transmission Date: 20051028
  Serious: Yes (Hospitalization, Other)
  Sender: FDA-Public Use
  Company Number: GB-JNJFOC-20050500968

PATIENT
  Sex: Female
  Weight: 88 kg

DRUGS (7)
  1. REMICADE [Suspect]
     Indication: TEMPORAL ARTERITIS
     Route: 042
  2. PREDNISOLONE [Concomitant]
     Route: 065
  3. IBRUPROFEN [Concomitant]
     Route: 065
  4. TRAMADOL [Concomitant]
     Route: 065
  5. FOSAMAX [Concomitant]
     Route: 065
  6. CALCICHEW [Concomitant]
     Route: 065
  7. CELEBREX [Concomitant]
     Route: 065

REACTIONS (5)
  - BLOOD CALCIUM INCREASED [None]
  - BLOOD PARATHYROID HORMONE INCREASED [None]
  - C-REACTIVE PROTEIN INCREASED [None]
  - HEADACHE [None]
  - RED BLOOD CELL SEDIMENTATION RATE INCREASED [None]
